FAERS Safety Report 14326944 (Version 2)
Quarter: 2018Q1

REPORT INFORMATION
  Report Type: Spontaneous
  Country: FR (occurrence: FR)
  Receive Date: 20171227
  Receipt Date: 20180227
  Transmission Date: 20180509
  Serious: Yes (Hospitalization)
  Sender: FDA-Public Use
  Company Number: FR-B.I. PHARMACEUTICALS,INC./RIDGEFIELD-2017-12-000240

PATIENT
  Age: 87 Year
  Sex: Male

DRUGS (7)
  1. BISOPROLOL [Concomitant]
     Active Substance: BISOPROLOL
     Indication: PRODUCT USED FOR UNKNOWN INDICATION
     Route: 065
  2. HAVLANE [Suspect]
     Active Substance: LOPRAZOLAM
     Indication: SLEEP DISORDER
     Route: 048
     Dates: end: 20171104
  3. TRAMADOL. [Concomitant]
     Active Substance: TRAMADOL
     Indication: PRODUCT USED FOR UNKNOWN INDICATION
     Route: 065
  4. SIFROL [Suspect]
     Active Substance: PRAMIPEXOLE
     Indication: RESTLESS LEGS SYNDROME
     Route: 048
     Dates: end: 20171104
  5. XALACOM [Suspect]
     Active Substance: LATANOPROST\TIMOLOL MALEATE
     Indication: GLAUCOMA
     Route: 047
     Dates: end: 20171104
  6. LOVENOX [Suspect]
     Active Substance: ENOXAPARIN SODIUM
     Indication: THROMBOSIS PROPHYLAXIS
     Route: 058
     Dates: start: 20171101, end: 20171104
  7. SKUDEXUM [Suspect]
     Active Substance: DEXKETOPROFEN\TRAMADOL
     Indication: PAIN
     Dosage: SI BESOIN
     Route: 048
     Dates: start: 20171027, end: 20171104

REACTIONS (6)
  - Haematuria [Recovered/Resolved]
  - Melaena [Recovering/Resolving]
  - Anaemia [Not Recovered/Not Resolved]
  - Rectal haemorrhage [Recovered/Resolved]
  - Gastrointestinal haemorrhage [Recovered/Resolved]
  - Peptic ulcer [Recovering/Resolving]

NARRATIVE: CASE EVENT DATE: 20171104
